FAERS Safety Report 22844314 (Version 3)
Quarter: 2023Q4

REPORT INFORMATION
  Report Type: Spontaneous
  Country: CA (occurrence: CA)
  Receive Date: 20230821
  Receipt Date: 20231109
  Transmission Date: 20240110
  Serious: Yes (Other)
  Sender: FDA-Public Use
  Company Number: CA-PFIZER INC-202300277746

PATIENT
  Age: 49 Year
  Sex: Male

DRUGS (3)
  1. XELJANZ [Suspect]
     Active Substance: TOFACITINIB CITRATE
     Indication: Colitis ulcerative
     Dosage: 1 DF 2X/DAY (10 MG BID FOR 8 WEEKS THEN 5 MG BID)
     Route: 048
     Dates: start: 20230731
  2. ENTYVIO [Concomitant]
     Active Substance: VEDOLIZUMAB
     Dosage: 1 DF, MONTHLY
     Route: 065
  3. PREDNISONE [Concomitant]
     Active Substance: PREDNISONE
     Dosage: 1 DF, DOSAGE INFO: UNKNOWN
     Route: 065
     Dates: start: 202306

REACTIONS (2)
  - Drug ineffective [Unknown]
  - Hypotension [Unknown]

NARRATIVE: CASE EVENT DATE: 20230824
